FAERS Safety Report 4941176-7 (Version None)
Quarter: 2006Q1

REPORT INFORMATION
  Report Type: 
  Country: None (occurrence: None)
  Receive Date: 20060308
  Receipt Date: 20060227
  Transmission Date: 20060701
  Serious: Yes (Other)
  Sender: FDA-Public Use
  Company Number: 2006029950

PATIENT
  Age: 80 Year
  Sex: Male
  Weight: 74.8435 kg

DRUGS (10)
  1. GLIPIZIDE GTS (GLIPIZIDE) [Suspect]
     Indication: BLOOD GLUCOSE
     Dosage: 50  MG (2 IN 1 D), ORAL
     Route: 048
     Dates: start: 19980101
  2. INSULIN [Concomitant]
  3. LANTUS [Concomitant]
  4. CORTEF [Concomitant]
  5. DETROL [Concomitant]
  6. ZOLOFT [Concomitant]
  7. PREDNISONE [Concomitant]
  8. DEMEROL [Concomitant]
  9. LUPRON [Concomitant]
  10. ZOMETA [Concomitant]

REACTIONS (2)
  - PROSTATE CANCER [None]
  - WEIGHT DECREASED [None]
